FAERS Safety Report 9031357 (Version 3)
Quarter: 2013Q1

REPORT INFORMATION
  Report Type: Spontaneous
  Country: GB (occurrence: GB)
  Receive Date: 20130124
  Receipt Date: 20130321
  Transmission Date: 20140127
  Serious: Yes (Hospitalization, Other)
  Sender: FDA-Public Use
  Company Number: PHHY2013GB006141

PATIENT
  Sex: Female

DRUGS (3)
  1. OMNITROPE [Suspect]
     Indication: HORMONE REPLACEMENT THERAPY
     Dosage: 0.3 MG, DAILY DOSE
     Route: 058
     Dates: end: 201110
  2. HYDROCORTISONE [Concomitant]
     Indication: HORMONE REPLACEMENT THERAPY
  3. THYROXINE [Concomitant]
     Indication: HORMONE REPLACEMENT THERAPY
     Route: 048

REACTIONS (2)
  - Rectal cancer [Unknown]
  - Gastrointestinal carcinoma [Unknown]
